FAERS Safety Report 19481596 (Version 4)
Quarter: 2021Q3

REPORT INFORMATION
  Report Type: Report from Study
  Country: US (occurrence: US)
  Receive Date: 20210701
  Receipt Date: 20210908
  Transmission Date: 20211014
  Serious: No
  Sender: FDA-Public Use
  Company Number: US-GLAXOSMITHKLINE-US2021AMR125811

PATIENT
  Age: 62 Year
  Sex: Male

DRUGS (1)
  1. BELANTAMAB MAFODOTIN. [Suspect]
     Active Substance: BELANTAMAB MAFODOTIN
     Indication: PRODUCT USED FOR UNKNOWN INDICATION
     Dosage: UNK
     Dates: start: 20210401

REACTIONS (4)
  - Dry eye [Recovering/Resolving]
  - Keratopathy [Unknown]
  - Visual acuity reduced [Recovering/Resolving]
  - Night blindness [Recovering/Resolving]

NARRATIVE: CASE EVENT DATE: 20210513
